FAERS Safety Report 25188702 (Version 1)
Quarter: 2025Q2

REPORT INFORMATION
  Report Type: Spontaneous
  Country: FR (occurrence: FR)
  Receive Date: 20250411
  Receipt Date: 20250411
  Transmission Date: 20250716
  Serious: Yes (Hospitalization)
  Sender: EXELIXIS
  Company Number: FR-IPSEN Group, Research and Development-2025-07798

PATIENT
  Age: 83 Year
  Sex: Female
  Weight: 49 kg

DRUGS (1)
  1. CABOMETYX [Suspect]
     Active Substance: CABOZANTINIB S-MALATE
     Indication: Renal cancer
     Dosage: 40 MG, QD
     Route: 048
     Dates: start: 20241016, end: 20241108

REACTIONS (6)
  - Hallucination [Recovered/Resolved]
  - Confusional state [Recovered/Resolved]
  - Hypertension [Recovering/Resolving]
  - Proteinuria [Recovering/Resolving]
  - Hypothyroidism [Recovered/Resolved]
  - Accidental overdose [Unknown]

NARRATIVE: CASE EVENT DATE: 20241108
